FAERS Safety Report 13860324 (Version 1)
Quarter: 2017Q3

REPORT INFORMATION
  Report Type: Report from Study
  Country: US (occurrence: US)
  Receive Date: 20170811
  Receipt Date: 20170811
  Transmission Date: 20171127
  Serious: Yes (Hospitalization, Other)
  Sender: FDA-Public Use
  Company Number: US-BRISTOL-MYERS SQUIBB COMPANY-13107073

PATIENT
  Age: 15 Year
  Sex: Female

DRUGS (6)
  1. IBUPROFEN. [Concomitant]
     Active Substance: IBUPROFEN
     Indication: MUSCLE SPASMS
     Dosage: 400 MG, UNK
     Route: 048
     Dates: start: 20050827, end: 20050828
  2. ADVIL [Concomitant]
     Active Substance: IBUPROFEN
     Indication: MUSCLE SPASMS
     Dosage: 200 MG, BID
     Route: 048
     Dates: start: 20050827, end: 20050828
  3. COGENTIN [Concomitant]
     Active Substance: BENZTROPINE MESYLATE
     Indication: AKATHISIA
     Dosage: 0.5 MG, BID
     Route: 048
     Dates: start: 20050819, end: 20050829
  4. ARIPIPRAZOLE. [Suspect]
     Active Substance: ARIPIPRAZOLE
     Indication: BIPOLAR DISORDER
     Dosage: DOSE VALUE:  10 TO 30 MG
     Route: 048
     Dates: start: 20050804, end: 20050828
  5. BENZATROPINE MESILATE [Concomitant]
     Active Substance: BENZTROPINE
     Indication: AKATHISIA
     Dosage: .1 MG, UNK
     Route: 048
     Dates: start: 20050819, end: 20050829
  6. IBUPROFEN. [Concomitant]
     Active Substance: IBUPROFEN
     Indication: BACK PAIN
     Route: 065

REACTIONS (2)
  - Suicidal ideation [Recovered/Resolved]
  - Intentional self-injury [Recovered/Resolved]

NARRATIVE: CASE EVENT DATE: 20050825
